FAERS Safety Report 22270161 (Version 2)
Quarter: 2023Q2

REPORT INFORMATION
  Report Type: Spontaneous
  Country: JP (occurrence: JP)
  Receive Date: 20230501
  Receipt Date: 20230516
  Transmission Date: 20230722
  Serious: Yes (Other)
  Sender: FDA-Public Use
  Company Number: JP-SA-2023SA131161

PATIENT
  Sex: Female

DRUGS (1)
  1. LIBTAYO [Suspect]
     Active Substance: CEMIPLIMAB-RWLC
     Indication: Cervix carcinoma
     Dosage: 350 MG/DAY
     Route: 041
     Dates: start: 20230406, end: 202304

REACTIONS (2)
  - Ileus [Recovering/Resolving]
  - Stoma obstruction [Recovering/Resolving]

NARRATIVE: CASE EVENT DATE: 20230401
